FAERS Safety Report 7375069-5 (Version None)
Quarter: 2011Q1

REPORT INFORMATION
  Report Type: 
  Country: None (occurrence: None)
  Receive Date: 20110325
  Receipt Date: 20110321
  Transmission Date: 20110831
  Serious: Yes (Death, Hospitalization, Other)
  Sender: FDA-Public Use
  Company Number: PHHY2011FR22798

PATIENT
  Sex: Female

DRUGS (8)
  1. AMIODARONE HCL [Interacting]
     Dosage: UNK
     Dates: start: 20110209, end: 20110302
  2. ASPEGIC 325 [Concomitant]
     Dosage: UNK
  3. COLCHIMAX [Suspect]
     Dosage: UNK
     Route: 048
     Dates: start: 20110209, end: 20110302
  4. COTAREG [Concomitant]
     Dosage: UNK
  5. LESCOL [Interacting]
     Dosage: UNK
     Route: 048
     Dates: start: 20050101, end: 20110302
  6. AMLODIPINE BESYLATE [Concomitant]
     Dosage: UNK
  7. CARDENSIEL [Concomitant]
  8. ESOMEPRAZOLE [Concomitant]
     Dosage: UNK

REACTIONS (15)
  - RHABDOMYOLYSIS [None]
  - MUSCULAR WEAKNESS [None]
  - MYALGIA [None]
  - MYOCARDIAL INFARCTION [None]
  - RENAL FAILURE ACUTE [None]
  - ABDOMINAL PAIN [None]
  - FEELING HOT [None]
  - PAIN IN EXTREMITY [None]
  - PERICARDIAL EFFUSION [None]
  - DRUG INTERACTION [None]
  - RENAL HYPERTROPHY [None]
  - DIARRHOEA [None]
  - HAEMOGLOBIN DECREASED [None]
  - CYTOLYTIC HEPATITIS [None]
  - VOMITING [None]
